FAERS Safety Report 8870055 (Version 1)
Quarter: 2012Q4

REPORT INFORMATION
  Report Type: 
  Country: US (occurrence: US)
  Receive Date: 20121026
  Receipt Date: 20121026
  Transmission Date: 20130627
  Serious: Yes (Other)
  Sender: FDA-Public Use
  Company Number: US-AMGEN-USASP2012042488

PATIENT
  Age: 63 Year
  Sex: Female
  Weight: 153.29 kg

DRUGS (13)
  1. ENBREL [Suspect]
     Indication: PSORIASIS
     Dosage: 50 mg, UNK
  2. DICLOFENAC [Concomitant]
     Dosage: 50 mg, UNK
     Route: 048
  3. METHOTREXATE [Concomitant]
     Dosage: 2.5 mg, UNK
     Route: 048
  4. METFORMIN [Concomitant]
     Dosage: 500 mg, UNK
     Route: 048
  5. LISINOPRIL [Concomitant]
     Dosage: 10 mg, UNK
     Route: 048
  6. METOPROLOL [Concomitant]
     Dosage: 50 mg, UNK
     Route: 048
  7. VITAMIN D /00107901/ [Concomitant]
     Dosage: 50000 IU, UNK
     Route: 048
  8. PREVACID [Concomitant]
     Dosage: 30 mg, UNK
     Route: 048
  9. CRESTOR [Concomitant]
     Dosage: 5 mg, UNK
     Route: 048
  10. VIIBRYD [Concomitant]
     Dosage: 10 mg, UNK
     Route: 048
  11. ASA [Concomitant]
     Dosage: 81 mg, UNK
     Route: 048
  12. MULTIVITAMIN                       /00097801/ [Concomitant]
     Dosage: UNK
  13. MINERALS NOS [Concomitant]
     Dosage: UNK
     Route: 048

REACTIONS (1)
  - Malignant melanoma [Unknown]
